FAERS Safety Report 7603277-4 (Version None)
Quarter: 2011Q2

REPORT INFORMATION
  Report Type: 
  Country: None (occurrence: None)
  Receive Date: 20110630
  Receipt Date: 20110620
  Transmission Date: 20111010
  Serious: Yes (Death, Hospitalization)
  Sender: FDA-Public Use
  Company Number: 2011101420

PATIENT
  Age: 28 Year
  Sex: Female
  Weight: 67.4 kg

DRUGS (1)
  1. FRAGMIN [Suspect]
     Indication: THROMBOSIS PROPHYLAXIS
     Dosage: 5000 IU, 1X/DAY, IV DRIP
     Route: 041
     Dates: start: 20100423, end: 20100424

REACTIONS (12)
  - CEREBRAL ISCHAEMIA [None]
  - DEEP VEIN THROMBOSIS [None]
  - PULMONARY EMBOLISM [None]
  - INTRACARDIAC THROMBUS [None]
  - HYPOXIC-ISCHAEMIC ENCEPHALOPATHY [None]
  - FALL [None]
  - CHEST PAIN [None]
  - HYPOTENSION [None]
  - BRAIN DEATH [None]
  - SHOCK [None]
  - CYANOSIS [None]
  - RESPIRATORY FAILURE [None]
